FAERS Safety Report 7360226-4 (Version None)
Quarter: 2011Q1

REPORT INFORMATION
  Report Type: 
  Country: None (occurrence: None)
  Receive Date: 20110307
  Receipt Date: 20110224
  Transmission Date: 20110831
  Serious: Yes (Hospitalization)
  Sender: FDA-Public Use
  Company Number: OMPQ-NO-1102S-0244

PATIENT
  Sex: Male

DRUGS (6)
  1. OMEPRAZOLE [Concomitant]
  2. FLUVASTATIN SODIUM [Concomitant]
  3. OMNIPAQUE 70 [Suspect]
     Indication: CORONARY ARTERY STENOSIS
     Dosage: 133.2 ML, SINGLE DOSE, I.V.
     Route: 042
     Dates: start: 20110218, end: 20110218
  4. PRASUGREL (CS-747S) [Suspect]
     Indication: ACUTE CORONARY SYNDROME
     Dosage: ,15 D
     Dates: start: 20110207, end: 20110221
  5. NICORANDIL [Concomitant]
  6. ASPIRIN [Concomitant]

REACTIONS (1)
  - TOXIC SKIN ERUPTION [None]
